FAERS Safety Report 23567982 (Version 5)
Quarter: 2025Q2

REPORT INFORMATION
  Report Type: Spontaneous
  Country: US (occurrence: US)
  Receive Date: 20240226
  Receipt Date: 20250409
  Transmission Date: 20250717
  Serious: No
  Sender: SANOFI AVENTIS
  Company Number: US-SA-SAC20240220000852

PATIENT
  Age: 63 Year
  Sex: Female

DRUGS (1)
  1. KEVZARA [Suspect]
     Active Substance: SARILUMAB
     Indication: Rheumatoid arthritis
     Dosage: 200 MG, QOW
     Route: 058
     Dates: start: 20240409

REACTIONS (9)
  - Pain [Unknown]
  - Loss of personal independence in daily activities [Unknown]
  - Injection site erythema [Unknown]
  - Impaired quality of life [Unknown]
  - Fatigue [Unknown]
  - Infection [Unknown]
  - Herpes zoster [Unknown]
  - Injection site reaction [Recovered/Resolved]
  - Drug ineffective [Unknown]

NARRATIVE: CASE EVENT DATE: 20240301
